FAERS Safety Report 9164095 (Version 1)
Quarter: 2013Q1

REPORT INFORMATION
  Report Type: Spontaneous
  Country: DE (occurrence: DE)
  Receive Date: 20130315
  Receipt Date: 20130315
  Transmission Date: 20140127
  Serious: Yes (Hospitalization, Other)
  Sender: FDA-Public Use
  Company Number: DE-AMGEN-DEUSP2013015805

PATIENT
  Age: 30 Year
  Sex: Female

DRUGS (7)
  1. NEULASTA [Suspect]
     Indication: BURKITT^S LYMPHOMA
     Dosage: UNK UNK, AFTER CHEMO
     Dates: start: 2012
  2. NEUPOGEN [Suspect]
     Indication: BURKITT^S LYMPHOMA
     Dosage: UNK UNK, DAILY
  3. RITUXIMAB [Concomitant]
     Indication: BURKITT^S LYMPHOMA
     Dosage: 4XRMONO THEN 4 X R CHOP
     Dates: start: 201209, end: 201212
  4. CYCLOPHOSPHAMIDE [Concomitant]
     Indication: BURKITT^S LYMPHOMA
     Dosage: UNK 4 CYCLES
     Dates: start: 201210, end: 201212
  5. DOXORUBICIN [Concomitant]
     Indication: BURKITT^S LYMPHOMA
     Dosage: UNK, 4 CYCLES
     Dates: start: 201210, end: 201212
  6. ONCOVIN [Concomitant]
     Indication: BURKITT^S LYMPHOMA
     Dosage: UNK, 4 CYCLES
     Dates: start: 201210, end: 201212
  7. PREDNISOLONE [Concomitant]
     Indication: BURKITT^S LYMPHOMA
     Dosage: UNK, 4 CYCLES
     Dates: start: 201210, end: 201212

REACTIONS (6)
  - Sepsis [Unknown]
  - C-reactive protein increased [Unknown]
  - Neutropenia [Unknown]
  - Metastases to meninges [Unknown]
  - Febrile neutropenia [Unknown]
  - Incorrect dose administered [Unknown]
